FAERS Safety Report 18205177 (Version 1)
Quarter: 2020Q3

REPORT INFORMATION
  Report Type: Spontaneous
  Country: US (occurrence: US)
  Receive Date: 20200828
  Receipt Date: 20200828
  Transmission Date: 20201103
  Serious: Yes (Other)
  Sender: FDA-Public Use
  Company Number: US-GILEAD-2020-0491288

PATIENT
  Sex: Female
  Weight: 77 kg

DRUGS (36)
  1. AMOXICILLIN. [Concomitant]
     Active Substance: AMOXICILLIN
  2. CELEBREX [Concomitant]
     Active Substance: CELECOXIB
  3. CLOPIDOGREL [Concomitant]
     Active Substance: CLOPIDOGREL BISULFATE
  4. NORTRIPTYLINE [Concomitant]
     Active Substance: NORTRIPTYLINE
  5. LORATADINE. [Concomitant]
     Active Substance: LORATADINE
  6. NOVOLIN N [Concomitant]
     Active Substance: INSULIN HUMAN
  7. PRAVASTATIN. [Concomitant]
     Active Substance: PRAVASTATIN
  8. PIFELTRO [Concomitant]
     Active Substance: DORAVIRINE
  9. METOPROLOL. [Concomitant]
     Active Substance: METOPROLOL
  10. TIZANIDINE. [Concomitant]
     Active Substance: TIZANIDINE
  11. TRUVADA [Suspect]
     Active Substance: EMTRICITABINE\TENOFOVIR DISOPROXIL FUMARATE
     Indication: HIV INFECTION
     Dosage: UNK
     Route: 048
     Dates: start: 20121017, end: 20160926
  12. HYDROXYZINE [Concomitant]
     Active Substance: HYDROXYZINE HYDROCHLORIDE
  13. JANUMET [Concomitant]
     Active Substance: METFORMIN HYDROCHLORIDE\SITAGLIPTIN PHOSPHATE
  14. METFORMIN [Concomitant]
     Active Substance: METFORMIN HYDROCHLORIDE
  15. ASPIRIN (E.C.) [Concomitant]
     Active Substance: ASPIRIN
  16. DIAZEPAM. [Concomitant]
     Active Substance: DIAZEPAM
  17. LANTUS [Concomitant]
     Active Substance: INSULIN GLARGINE
  18. VENLAFAXINE [Concomitant]
     Active Substance: VENLAFAXINE HYDROCHLORIDE
  19. HYDROCODONE [Concomitant]
     Active Substance: HYDROCODONE
  20. ACETAMINOPHEN. [Concomitant]
     Active Substance: ACETAMINOPHEN
  21. EDURANT [Concomitant]
     Active Substance: RILPIVIRINE HYDROCHLORIDE
  22. LYRICA [Concomitant]
     Active Substance: PREGABALIN
  23. NASONEX [Concomitant]
     Active Substance: MOMETASONE FUROATE
  24. ROSUVASTATIN. [Concomitant]
     Active Substance: ROSUVASTATIN
  25. COMPLERA [Suspect]
     Active Substance: EMTRICITABINE\RILPIVIRINE HYDROCHLORIDE\TENOFOVIR DISOPROXIL FUMARATE
     Indication: HIV INFECTION
     Dosage: UNK
     Route: 048
     Dates: start: 20130206, end: 20130304
  26. FAMOTIDINE. [Concomitant]
     Active Substance: FAMOTIDINE
  27. HUMULIN 70/30 [Concomitant]
     Active Substance: INSULIN HUMAN
  28. HYDROCHLOROTHIAZIDE. [Concomitant]
     Active Substance: HYDROCHLOROTHIAZIDE
  29. PROPYLTHIOURACIL. [Concomitant]
     Active Substance: PROPYLTHIOURACIL
  30. ODEFSEY [Concomitant]
     Active Substance: EMTRICITABINE\RILPIVIRINE HYDROCHLORIDE\TENOFOVIR ALAFENAMIDE FUMARATE
  31. VITAMIN D [VITAMIN D NOS] [Concomitant]
     Active Substance: VITAMIN D NOS
  32. FUROSEMIDE. [Concomitant]
     Active Substance: FUROSEMIDE
  33. LISINOPRIL. [Concomitant]
     Active Substance: LISINOPRIL
  34. MELOXICAM. [Concomitant]
     Active Substance: MELOXICAM
  35. TRAZODONE [Concomitant]
     Active Substance: TRAZODONE HYDROCHLORIDE
  36. VALACYCLOVIR HCL [Concomitant]
     Active Substance: VALACYCLOVIR HYDROCHLORIDE

REACTIONS (8)
  - Renal impairment [Not Recovered/Not Resolved]
  - Nightmare [Unknown]
  - Emotional distress [Not Recovered/Not Resolved]
  - Osteoporosis [Not Recovered/Not Resolved]
  - Bone density decreased [Not Recovered/Not Resolved]
  - Pain [Not Recovered/Not Resolved]
  - Anxiety [Not Recovered/Not Resolved]
  - Depression [Not Recovered/Not Resolved]

NARRATIVE: CASE EVENT DATE: 2014
